FAERS Safety Report 10176137 (Version 1)
Quarter: 2014Q2

REPORT INFORMATION
  Report Type: Spontaneous
  Country: US (occurrence: US)
  Receive Date: 20140516
  Receipt Date: 20140516
  Transmission Date: 20141212
  Serious: No
  Sender: FDA-Public Use
  Company Number: US-PFIZER INC-2014131583

PATIENT
  Age: 82 Year
  Sex: Male
  Weight: 84.35 kg

DRUGS (4)
  1. TIKOSYN [Suspect]
     Indication: ATRIAL FIBRILLATION
     Dosage: 0.25 MG, 2X/DAY
     Dates: start: 20140407
  2. COSOPT [Concomitant]
     Indication: GLAUCOMA
     Dosage: UNK
     Route: 047
  3. LISINOPRIL [Concomitant]
     Indication: BLOOD PRESSURE ABNORMAL
     Dosage: 10 MG, DAILY
  4. FUROSEMIDE [Concomitant]
     Indication: FLUID RETENTION
     Dosage: 80 MG, 2X/DAY

REACTIONS (2)
  - Cough [Not Recovered/Not Resolved]
  - Nasopharyngitis [Not Recovered/Not Resolved]
